FAERS Safety Report 5253492-2 (Version None)
Quarter: 2007Q1

REPORT INFORMATION
  Report Type: 
  Country: None (occurrence: None)
  Receive Date: 20070301
  Receipt Date: 20070214
  Transmission Date: 20070707
  Serious: Yes (Hospitalization)
  Sender: FDA-Public Use
  Company Number: US-SHR-US-2007-005464

PATIENT
  Sex: Male

DRUGS (4)
  1. LEUKINE [Suspect]
     Indication: METASTATIC MALIGNANT MELANOMA
     Dosage: 125MCG/M2/D, DAYS 8-21
     Route: 058
     Dates: start: 20070118, end: 20070131
  2. TEMOZOLOMIDE [Suspect]
     Indication: METASTATIC MALIGNANT MELANOMA
     Dosage: 200 MG/M2 DAYS 1-5
     Route: 048
     Dates: start: 20070111, end: 20070115
  3. TEMOZOLOMIDE [Suspect]
     Dosage: 200 MG/M2 DAYS 1-5
     Route: 048
     Dates: start: 20070201, end: 20070201
  4. PROLEUKIN [Suspect]
     Indication: METASTATIC MALIGNANT MELANOMA
     Dosage: 600,000IU/KG
     Route: 042
     Dates: start: 20061113

REACTIONS (2)
  - MALIGNANT NEOPLASM PROGRESSION [None]
  - PULMONARY EMBOLISM [None]
